FAERS Safety Report 4592875-0 (Version None)
Quarter: 2005Q1

REPORT INFORMATION
  Report Type: 
  Country: None (occurrence: None)
  Receive Date: 20050228
  Receipt Date: 20050121
  Transmission Date: 20050727
  Serious: Yes (Hospitalization)
  Sender: FDA-Public Use
  Company Number: JP-ROCHE-393412

PATIENT
  Age: 30 Year
  Sex: Male

DRUGS (1)
  1. PEGASYS [Suspect]
     Route: 058
     Dates: start: 20040302, end: 20050112

REACTIONS (3)
  - DRUG HYPERSENSITIVITY [None]
  - PLEURISY [None]
  - PYOTHORAX [None]
